FAERS Safety Report 10004345 (Version 2)
Quarter: 2014Q2

REPORT INFORMATION
  Report Type: Spontaneous
  Country: US (occurrence: US)
  Receive Date: 20140312
  Receipt Date: 20140522
  Transmission Date: 20141212
  Serious: Yes (Other)
  Sender: FDA-Public Use
  Company Number: PHEH2014US004759

PATIENT
  Sex: Male
  Weight: 146.3 kg

DRUGS (5)
  1. MYFORTIC [Suspect]
     Dosage: 360 MG, BID DAILY
     Dates: start: 2007
  2. LISINOPRIL [Concomitant]
     Indication: BLOOD PRESSURE ABNORMAL
     Dosage: UNK
     Dates: start: 2007
  3. COREG [Concomitant]
     Indication: BLOOD PRESSURE ABNORMAL
     Dosage: UNK
     Dates: start: 2009
  4. MINOXIDIL [Concomitant]
     Indication: BLOOD PRESSURE ABNORMAL
     Dosage: UNK
     Dates: start: 2010
  5. CLONIDINE [Concomitant]
     Indication: BLOOD PRESSURE ABNORMAL
     Dosage: UNK
     Dates: start: 2007

REACTIONS (4)
  - Retinal detachment [Unknown]
  - Visual field defect [Unknown]
  - Fibromyalgia [Unknown]
  - Eye disorder [Unknown]
